FAERS Safety Report 4898931-1 (Version None)
Quarter: 2006Q1

REPORT INFORMATION
  Report Type: 
  Country: None (occurrence: None)
  Receive Date: 20060106
  Receipt Date: 20051010
  Transmission Date: 20060701
  Serious: No
  Sender: FDA-Public Use
  Company Number: 200512166BWH

PATIENT
  Age: 52 Year
  Sex: Male

DRUGS (4)
  1. LEVITRA [Suspect]
     Dosage: 20 MG; 10 MG : TOTAL DAILY, ORAL
     Route: 048
     Dates: start: 20050101
  2. VYTORIN [Concomitant]
  3. PROPECIA [Concomitant]
  4. ALCOHOL [Concomitant]

REACTIONS (1)
  - GINGIVAL BLEEDING [None]
